FAERS Safety Report 14214991 (Version 1)
Quarter: 2017Q4

REPORT INFORMATION
  Report Type: Spontaneous
  Country: US (occurrence: US)
  Receive Date: 20171122
  Receipt Date: 20171122
  Transmission Date: 20180321
  Serious: No
  Sender: FDA-Public Use
  Company Number: US-ROCHE-1956522

PATIENT
  Sex: Female

DRUGS (3)
  1. AMLODIPINE [Concomitant]
     Active Substance: AMLODIPINE BESYLATE
     Route: 065
  2. HERCEPTIN [Suspect]
     Active Substance: TRASTUZUMAB
     Indication: BREAST CANCER FEMALE
     Dosage: INFUSE 298MG IV AS LOADING DOSE ON DAY 1, THEN 149
     Route: 042
  3. CEPHALEXIN. [Concomitant]
     Active Substance: CEPHALEXIN
     Route: 065

REACTIONS (2)
  - Alopecia [Unknown]
  - Rash [Unknown]
